FAERS Safety Report 6893845-X (Version None)
Quarter: 2010Q3

REPORT INFORMATION
  Report Type: 
  Country: None (occurrence: None)
  Receive Date: 20100802
  Receipt Date: 20100722
  Transmission Date: 20110219
  Serious: No
  Sender: FDA-Public Use
  Company Number: US-BIOGENIDEC-2010BI025176

PATIENT
  Sex: Male

DRUGS (1)
  1. TYSABRI [Suspect]
     Indication: MULTIPLE SCLEROSIS
     Route: 042
     Dates: start: 20100709

REACTIONS (6)
  - DECREASED APPETITE [None]
  - DEPRESSION [None]
  - HYPOAESTHESIA [None]
  - MOBILITY DECREASED [None]
  - MUSCLE SPASMS [None]
  - SOMNOLENCE [None]
